FAERS Safety Report 14854965 (Version 1)
Quarter: 2018Q2

REPORT INFORMATION
  Report Type: Spontaneous
  Country: US (occurrence: US)
  Receive Date: 20180507
  Receipt Date: 20180507
  Transmission Date: 20180711
  Serious: No
  Sender: FDA-Public Use
  Company Number: US-ROCHE-1930102

PATIENT
  Sex: Male

DRUGS (10)
  1. ESBRIET [Suspect]
     Active Substance: PIRFENIDONE
     Indication: PRODUCT USED FOR UNKNOWN INDICATION
     Route: 048
     Dates: start: 20160618
  2. ASPIRIN. [Concomitant]
     Active Substance: ASPIRIN
  3. RANITIDINE. [Concomitant]
     Active Substance: RANITIDINE
  4. TIZANIDINE. [Concomitant]
     Active Substance: TIZANIDINE
  5. BENAZEPRIL HCL [Concomitant]
     Active Substance: BENAZEPRIL HYDROCHLORIDE
  6. OMEPRAZOLE. [Concomitant]
     Active Substance: OMEPRAZOLE
  7. PREDNISONE. [Concomitant]
     Active Substance: PREDNISONE
  8. ALBUTEROL. [Concomitant]
     Active Substance: ALBUTEROL
  9. ROPINIROLE. [Concomitant]
     Active Substance: ROPINIROLE
  10. VANCOMYCIN [Concomitant]
     Active Substance: VANCOMYCIN

REACTIONS (3)
  - Sinus pain [Unknown]
  - Paranasal sinus discomfort [Unknown]
  - Rash [Unknown]
